FAERS Safety Report 9789829 (Version 1)
Quarter: 2013Q4

REPORT INFORMATION
  Report Type: Spontaneous
  Country: FR (occurrence: None)
  Receive Date: 20131227
  Receipt Date: 20131227
  Transmission Date: 20140711
  Serious: Yes (Hospitalization)
  Sender: FDA-Public Use
  Company Number: 1951185

PATIENT
  Age: 72 Year
  Sex: Male

DRUGS (3)
  1. (CARBOPLATIN) [Suspect]
     Indication: LUNG ADENOCARCINOMA
     Route: 042
     Dates: start: 20120116, end: 20120116
  2. (GEMCITABINE SANDOZ) [Suspect]
     Route: 042
     Dates: start: 20120116, end: 20120116
  3. (ONDANSETRON) [Suspect]
     Route: 042
     Dates: start: 20120116, end: 20120116

REACTIONS (1)
  - Vasculitis [None]
